FAERS Safety Report 18730338 (Version 1)
Quarter: 2021Q1

REPORT INFORMATION
  Report Type: Spontaneous
  Country: US (occurrence: US)
  Receive Date: 20210112
  Receipt Date: 20210112
  Transmission Date: 20210419
  Serious: No
  Sender: FDA-Public Use
  Company Number: US-INTRA-CELLULAR THERAPIES, INC.-2020ICT00190

PATIENT
  Age: 4 Decade
  Sex: Female

DRUGS (2)
  1. CAPLYTA [Suspect]
     Active Substance: LUMATEPERONE
     Indication: SCHIZOPHRENIA
     Dosage: UNK, 1X/DAY
     Route: 048
  2. ^OTHER MEDICATIONS^ [Suspect]
     Active Substance: UNSPECIFIED INGREDIENT

REACTIONS (1)
  - Burning sensation [Recovered/Resolved]
